FAERS Safety Report 8341141 (Version 2)
Quarter: 2013Q3

REPORT INFORMATION
  Report Type: Report from Study
  Country: US (occurrence: US)
  Receive Date: 20120118
  Receipt Date: 20130924
  Transmission Date: 20140515
  Serious: Yes (Hospitalization)
  Sender: FDA-Public Use
  Company Number: US-UCBSA-049391

PATIENT
  Age: 14 Year
  Sex: Female
  Weight: 49 kg

DRUGS (9)
  1. LACOSAMIDE [Suspect]
     Indication: PARTIAL SEIZURES
     Dosage: 24 M/S
     Route: 048
     Dates: start: 20111020
  2. LACOSAMIDE [Suspect]
     Indication: PARTIAL SEIZURES
     Dosage: 19   M/S
     Route: 048
     Dates: start: 20110727, end: 20111019
  3. TRILEPTAL [Concomitant]
     Indication: EPILEPSY
     Route: 048
     Dates: start: 20110201
  4. KEPPRA [Concomitant]
     Indication: EPILEPSY
     Route: 048
     Dates: start: 20110629
  5. ENAPRIL [Concomitant]
     Indication: HYPERTENSION
     Route: 048
     Dates: start: 20111019
  6. ELAVIL [Concomitant]
     Indication: HEADACHE
     Route: 048
     Dates: start: 20110824
  7. CARAFATE [Concomitant]
     Indication: ABDOMINAL PAIN
     Route: 048
     Dates: start: 201109
  8. NEURONTIN [Concomitant]
     Indication: NEURALGIA
     Route: 048
     Dates: start: 20110909
  9. PRILOSEC [Concomitant]
     Route: 048

REACTIONS (1)
  - Convulsion [Recovered/Resolved]
